FAERS Safety Report 11357031 (Version 1)
Quarter: 2015Q3

REPORT INFORMATION
  Report Type: Spontaneous
  Country: US (occurrence: US)
  Receive Date: 20150803
  Receipt Date: 20150803
  Transmission Date: 20151125
  Serious: Yes (Disabling)
  Sender: FDA-Public Use
  Company Number: US-ELI_LILLY_AND_COMPANY-US201306006580

PATIENT
  Sex: Male

DRUGS (1)
  1. ZYPREXA [Suspect]
     Active Substance: OLANZAPINE
     Dosage: UNK

REACTIONS (6)
  - Depressed mood [Unknown]
  - Diabetes mellitus [Unknown]
  - Decreased activity [Unknown]
  - Emotional distress [Unknown]
  - Pain [Unknown]
  - Wound [Unknown]
